FAERS Safety Report 6610983-7 (Version None)
Quarter: 2010Q1

REPORT INFORMATION
  Report Type: 
  Country: None (occurrence: None)
  Receive Date: 20100222
  Receipt Date: 20100211
  Transmission Date: 20100710
  Serious: Yes (Other)
  Sender: FDA-Public Use
  Company Number: A-CH2010-33707

PATIENT
  Age: 76 Year
  Sex: Female
  Weight: 63 kg

DRUGS (10)
  1. TRACLEER [Suspect]
     Indication: PULMONARY ARTERIAL HYPERTENSION
     Dosage: 125 MG, BID, ORAL 62.5 MG, BID, ORAL
     Route: 048
     Dates: start: 20091027, end: 20091126
  2. TRACLEER [Suspect]
     Indication: PULMONARY ARTERIAL HYPERTENSION
     Dosage: 125 MG, BID, ORAL 62.5 MG, BID, ORAL
     Route: 048
     Dates: start: 20091127, end: 20100120
  3. SERETIDE (SALMETEROL, FLUTICASONE PROPIONATE) [Concomitant]
  4. SPIRIVA [Concomitant]
  5. FUROSEMIDE [Concomitant]
  6. SPIRONOLACTONE [Concomitant]
  7. COZAAR [Concomitant]
  8. ISOPTIN [Concomitant]
  9. SIMVASTATIN [Concomitant]
  10. BUMETANIDE [Concomitant]

REACTIONS (1)
  - HEPATIC FAILURE [None]
